FAERS Safety Report 10183123 (Version 1)
Quarter: 2014Q2

REPORT INFORMATION
  Report Type: Spontaneous
  Country: US (occurrence: US)
  Receive Date: 20140520
  Receipt Date: 20140520
  Transmission Date: 20141212
  Serious: Yes (Other)
  Sender: FDA-Public Use
  Company Number: US-SA-2014SA063002

PATIENT
  Age: 50 Year
  Sex: Female
  Weight: 104.3 kg

DRUGS (24)
  1. FABRAZYME [Suspect]
     Indication: FABRY^S DISEASE
     Route: 042
     Dates: start: 20130425
  2. DIPHENHYDRAMINE HYDROCHLORIDE [Concomitant]
  3. NORMAL SALINE [Concomitant]
  4. SODIUM CHLORIDE [Concomitant]
  5. WATER FOR INJECTION [Concomitant]
  6. EPINEPHRINE [Concomitant]
  7. LIDOCAINE [Concomitant]
  8. SOLU-MEDROL [Concomitant]
  9. CYMBALTA [Concomitant]
     Dosage: 30 MG
  10. VALTREX [Concomitant]
     Dosage: 500 MG CAPLET
  11. ZYRTEC-D /USA/ [Concomitant]
  12. IBUPROFEN [Concomitant]
     Dosage: 200 MG CAPSULE
  13. AMLODIPINE BESILATE [Concomitant]
     Dosage: 2.5 MG
  14. TUMS E-X [Concomitant]
  15. LEVOTHYROXINE [Concomitant]
     Dosage: 175 MCG
  16. PHENYLEPHRINE [Concomitant]
     Dosage: 10 MG/ML VIAL
  17. SIMETHICONE [Concomitant]
     Dosage: 80 MG
  18. SENNA [Concomitant]
  19. CRANBERRY EXTRACT [Concomitant]
  20. OMEPRAZOLE [Concomitant]
     Dosage: 20 MG
  21. NORVASC [Concomitant]
     Dosage: 5 MG
  22. SYNTHROID [Concomitant]
     Dosage: 175 MCG
  23. ASPIRIN [Concomitant]
     Dosage: 81 MG
  24. DIVIGEL [Concomitant]
     Dosage: 0.5 MG GEL PACKET

REACTIONS (1)
  - Urinary tract infection [Unknown]
